FAERS Safety Report 21540442 (Version 1)
Quarter: 2022Q4

REPORT INFORMATION
  Report Type: Report from Study
  Country: US (occurrence: US)
  Receive Date: 20221102
  Receipt Date: 20221102
  Transmission Date: 20230112
  Serious: Yes (Other)
  Sender: FDA-Public Use
  Company Number: US-ABBVIE-4184041

PATIENT
  Sex: Female

DRUGS (1)
  1. HUMIRA [Suspect]
     Active Substance: ADALIMUMAB
     Indication: Psoriasis
     Route: 058
     Dates: end: 2022

REACTIONS (7)
  - Seizure [Unknown]
  - Pruritus [Unknown]
  - Scar [Not Recovered/Not Resolved]
  - Musculoskeletal stiffness [Unknown]
  - Nasopharyngitis [Unknown]
  - Dry skin [Unknown]
  - Stress [Unknown]
